FAERS Safety Report 23878912 (Version 7)
Quarter: 2024Q3

REPORT INFORMATION
  Report Type: Spontaneous
  Country: JP (occurrence: JP)
  Receive Date: 20240521
  Receipt Date: 20240919
  Transmission Date: 20241016
  Serious: Yes (Hospitalization, Other)
  Sender: ELI LILLY AND CO
  Company Number: JP-ELI_LILLY_AND_COMPANY-JP202405007037

PATIENT
  Age: 65 Year
  Sex: Male
  Weight: 55 kg

DRUGS (8)
  1. NECITUMUMAB [Suspect]
     Active Substance: NECITUMUMAB
     Indication: Lung neoplasm malignant
     Dosage: 800 MG
     Route: 041
     Dates: start: 20240423
  2. GEMCITABINE HYDROCHLORIDE [Suspect]
     Active Substance: GEMCITABINE HYDROCHLORIDE
     Indication: Lung neoplasm
     Dosage: 1600 MG
     Route: 041
     Dates: start: 20240423
  3. CISPLATIN [Suspect]
     Active Substance: CISPLATIN
     Indication: Lung neoplasm malignant
     Dosage: 100 MG
     Route: 041
     Dates: start: 20240423
  4. APREPITANT [Suspect]
     Active Substance: APREPITANT
     Indication: Abdominal discomfort
     Dosage: 125 MG
     Route: 048
     Dates: start: 20240423
  5. APREPITANT [Suspect]
     Active Substance: APREPITANT
     Dosage: 80 MG
     Route: 048
  6. LANSOPRAZOLE [Suspect]
     Active Substance: LANSOPRAZOLE
     Indication: Gastric ulcer
     Dosage: 15 MG
     Route: 048
     Dates: start: 20240501
  7. MINOCYCLINE HYDROCHLORIDE [Concomitant]
     Active Substance: MINOCYCLINE HYDROCHLORIDE
     Indication: Dermatitis
     Dosage: UNK
     Dates: start: 20240422, end: 20240505
  8. SODIUM PHOSPHATE, DIBASIC\SODIUM PHOSPHATE, MONOBASIC [Concomitant]
     Active Substance: SODIUM PHOSPHATE, DIBASIC\SODIUM PHOSPHATE, MONOBASIC
     Indication: Electrolyte substitution therapy
     Dosage: UNK
     Dates: start: 20240506, end: 20240514

REACTIONS (5)
  - Pancytopenia [Recovering/Resolving]
  - COVID-19 pneumonia [Unknown]
  - Abdominal discomfort [Unknown]
  - Gastric ulcer [Unknown]
  - Hypomagnesaemia [Recovered/Resolved]

NARRATIVE: CASE EVENT DATE: 20240423
